FAERS Safety Report 7292083-9 (Version None)
Quarter: 2011Q1

REPORT INFORMATION
  Report Type: 
  Country: None (occurrence: None)
  Receive Date: 20110215
  Receipt Date: 20110203
  Transmission Date: 20110831
  Serious: No
  Sender: FDA-Public Use
  Company Number: US-BIOGENIDEC-2010BI043499

PATIENT
  Age: 36 Year
  Sex: Female

DRUGS (1)
  1. TYSABRI [Suspect]
     Indication: MULTIPLE SCLEROSIS
     Route: 042
     Dates: start: 20081204

REACTIONS (10)
  - GAIT DISTURBANCE [None]
  - EMOTIONAL DISTRESS [None]
  - DEPRESSION [None]
  - MUSCLE TWITCHING [None]
  - INSOMNIA [None]
  - CRYING [None]
  - FRUSTRATION [None]
  - MEMORY IMPAIRMENT [None]
  - SENSORY DISTURBANCE [None]
  - COGNITIVE DISORDER [None]
